FAERS Safety Report 5025703-X (Version None)
Quarter: 2006Q2

REPORT INFORMATION
  Report Type: 
  Country: None (occurrence: None)
  Receive Date: 20060614
  Receipt Date: 20060602
  Transmission Date: 20061013
  Serious: Yes (Hospitalization)
  Sender: FDA-Public Use
  Company Number: US-JNJFOC-20060600848

PATIENT
  Sex: Male

DRUGS (6)
  1. RAZADYNE ER [Suspect]
     Indication: DEMENTIA ALZHEIMER'S TYPE
     Route: 048
  2. TOPROL-XL [Concomitant]
  3. LIPITOR [Concomitant]
  4. ASPIRIN [Concomitant]
  5. PREVACID [Concomitant]
  6. NITROGLYCERIN [Concomitant]

REACTIONS (2)
  - ASTHENIA [None]
  - DYSPNOEA [None]
